FAERS Safety Report 18501278 (Version 1)
Quarter: 2020Q4

REPORT INFORMATION
  Report Type: Spontaneous
  Country: US (occurrence: US)
  Receive Date: 20201112
  Receipt Date: 20201112
  Transmission Date: 20210114
  Serious: No
  Sender: FDA-Public Use
  Company Number: None

PATIENT
  Age: 71 Year
  Sex: Female
  Weight: 113.4 kg

DRUGS (1)
  1. HUMIRA [Suspect]
     Active Substance: ADALIMUMAB
     Indication: PSORIASIS
     Dosage: INJECT 80MG (2 SYRINGES) ON DAY 1, 40MG (1 SYRINGE) SUBCUTANEOULSLY DAY 8, THEN 40MG EVERY TOTHER WEEKS AS
     Route: 058
     Dates: start: 202006

REACTIONS (1)
  - Pneumonia [None]
